FAERS Safety Report 14184717 (Version 6)
Quarter: 2018Q1

REPORT INFORMATION
  Report Type: Report from Study
  Country: US (occurrence: US)
  Receive Date: 20171114
  Receipt Date: 20180306
  Transmission Date: 20180508
  Serious: Yes (Death, Hospitalization, Other)
  Sender: FDA-Public Use
  Company Number: US-GILEAD-2017-0304015

PATIENT
  Age: 86 Year
  Sex: Female
  Weight: 97 kg

DRUGS (11)
  1. WARFARIN [Suspect]
     Active Substance: WARFARIN
     Indication: PRODUCT USED FOR UNKNOWN INDICATION
     Dosage: UNK
     Route: 065
  2. FLUTICASONE. [Concomitant]
     Active Substance: FLUTICASONE
  3. REVATIO [Concomitant]
     Active Substance: SILDENAFIL CITRATE
     Indication: PULMONARY HYPERTENSION
  4. METOPROLOL. [Concomitant]
     Active Substance: METOPROLOL
  5. OXYGEN. [Concomitant]
     Active Substance: OXYGEN
  6. COUMADIN [Concomitant]
     Active Substance: WARFARIN SODIUM
     Indication: ATRIAL FIBRILLATION
  7. ARMOUR THYROID [Concomitant]
     Active Substance: THYROID, PORCINE
  8. AMBRISENTAN [Suspect]
     Active Substance: AMBRISENTAN
     Indication: PULMONARY HYPERTENSION
     Dosage: 5 MG, UNK
     Route: 065
     Dates: start: 20171106
  9. POTASSIUM CHLORIDE. [Concomitant]
     Active Substance: POTASSIUM CHLORIDE
  10. TEMAZEPAM. [Concomitant]
     Active Substance: TEMAZEPAM
  11. FUROSEMIDE. [Concomitant]
     Active Substance: FUROSEMIDE

REACTIONS (11)
  - Pulmonary arterial hypertension [Not Recovered/Not Resolved]
  - Gastrointestinal disorder [Unknown]
  - Haemorrhage [Unknown]
  - Unevaluable event [Unknown]
  - Neuropathy peripheral [Unknown]
  - Death [Fatal]
  - Atrial fibrillation [Not Recovered/Not Resolved]
  - Increased tendency to bruise [Unknown]
  - Oxygen saturation abnormal [Unknown]
  - Fluid retention [Unknown]
  - Dyspnoea exertional [Unknown]

NARRATIVE: CASE EVENT DATE: 20180228
